FAERS Safety Report 8933280 (Version 4)
Quarter: 2013Q4

REPORT INFORMATION
  Report Type: Report from Study
  Country: JP (occurrence: JP)
  Receive Date: 20121128
  Receipt Date: 20131126
  Transmission Date: 20140711
  Serious: Yes (Other)
  Sender: FDA-Public Use
  Company Number: JP-VERTEX PHARMACEUTICAL INC.-AE-2012-004719

PATIENT
  Age: 56 Year
  Sex: Male

DRUGS (14)
  1. VX-950 (TELAPREVIR) [Suspect]
     Indication: CHRONIC HEPATITIS C
     Dosage: 2250 MG, QD
     Route: 048
     Dates: start: 20120202, end: 20120314
  2. VX-950 (TELAPREVIR) [Suspect]
     Dosage: 1500 MG, QD
     Route: 048
     Dates: start: 20120315, end: 20120426
  3. PEGINTRON [Suspect]
     Indication: CHRONIC HEPATITIS C
     Dosage: 1.5 ?G/KG, QW
     Route: 058
     Dates: start: 20120202
  4. REBETOL [Suspect]
     Indication: CHRONIC HEPATITIS C
     Dosage: 800 MG, QD
     Route: 048
     Dates: start: 20120202, end: 20120307
  5. REBETOL [Suspect]
     Dosage: 600 MG, QD
     Route: 048
     Dates: start: 20120308, end: 20120328
  6. REBETOL [Suspect]
     Dosage: 400 MG, QD
     Route: 048
     Dates: start: 20120329, end: 20120613
  7. REBETOL [Suspect]
     Dosage: 600 MG, QD
     Route: 048
     Dates: start: 20120614
  8. EPADEL-S [Concomitant]
     Dosage: 1800 MG, QD
     Route: 048
     Dates: start: 20120202
  9. DEPAS [Concomitant]
     Dosage: 1 MG, QD
     Route: 048
     Dates: start: 20120315, end: 20130307
  10. LOXONIN [Concomitant]
     Route: 048
     Dates: start: 20120315
  11. LOXONIN [Concomitant]
     Dosage: 60 MG, PRN
     Route: 048
     Dates: end: 20120718
  12. GASTER D [Concomitant]
     Dosage: 40 MG, QD
     Route: 048
     Dates: start: 20120315
  13. AMOBAN [Concomitant]
     Dosage: 7.5 MG, QD
     Route: 048
  14. NAUZELIN OD [Concomitant]
     Dosage: 30 MG, QD
     Route: 048

REACTIONS (1)
  - Erythema multiforme [Recovered/Resolved]
